FAERS Safety Report 13496960 (Version 3)
Quarter: 2017Q4

REPORT INFORMATION
  Report Type: Spontaneous
  Country: KP (occurrence: KP)
  Receive Date: 20170428
  Receipt Date: 20171206
  Transmission Date: 20180320
  Serious: Yes (Other)
  Sender: FDA-Public Use
  Company Number: KP-LUPIN PHARMACEUTICALS INC.-2017-02044

PATIENT
  Age: 65 Year
  Sex: Female

DRUGS (1)
  1. CELECOXIB CAPSULES 100 MG [Suspect]
     Active Substance: CELECOXIB
     Indication: BACK PAIN
     Dosage: 2 DF, UNK
     Route: 065

REACTIONS (2)
  - Accidental overdose [Unknown]
  - Acute generalised exanthematous pustulosis [Recovered/Resolved]
